FAERS Safety Report 14777341 (Version 1)
Quarter: 2018Q2

REPORT INFORMATION
  Report Type: Spontaneous
  Country: US (occurrence: US)
  Receive Date: 20180419
  Receipt Date: 20180419
  Transmission Date: 20180711
  Serious: No
  Sender: FDA-Public Use
  Company Number: US-LUPIN PHARMACEUTICALS INC.-2017-05099

PATIENT
  Sex: Female

DRUGS (1)
  1. AFTER PILL (LEVONORGESTREL) [Suspect]
     Active Substance: LEVONORGESTREL
     Indication: POST COITAL CONTRACEPTION
     Dosage: UNK, SINGLE
     Route: 065

REACTIONS (3)
  - Abdominal distension [Unknown]
  - Breast tenderness [Unknown]
  - Metrorrhagia [Unknown]
